FAERS Safety Report 7002356-2 (Version None)
Quarter: 2010Q3

REPORT INFORMATION
  Report Type: 
  Country: None (occurrence: None)
  Receive Date: 20100920
  Receipt Date: 20100527
  Transmission Date: 20110219
  Serious: No
  Sender: FDA-Public Use
  Company Number: US-ASTRAZENECA-2007UW17511

PATIENT
  Sex: Male

DRUGS (11)
  1. SEROQUEL [Suspect]
     Route: 048
     Dates: start: 20021005
  2. ZYPREXA [Concomitant]
     Dosage: 5 MG-15 MG
     Dates: start: 20021005
  3. TRAZODONE HCL [Concomitant]
     Dates: start: 20021005
  4. DEPAKOTE [Concomitant]
     Dosage: 500MG -1500MG
     Dates: start: 20021005
  5. GEODON [Concomitant]
     Dates: start: 20070326
  6. ABILIFY [Concomitant]
     Dates: start: 20070326
  7. ATIVAN [Concomitant]
     Dosage: 0.5 MG BID, 1MG QHS
     Dates: start: 20070326
  8. LAMICTAL [Concomitant]
     Dates: start: 20050722
  9. AMBIEN [Concomitant]
     Dates: start: 20060125
  10. CELEXA [Concomitant]
     Dates: start: 20021005
  11. PROLIXIN [Concomitant]
     Dates: start: 20021005

REACTIONS (1)
  - ILL-DEFINED DISORDER [None]
